FAERS Safety Report 22532219 (Version 3)
Quarter: 2025Q3

REPORT INFORMATION
  Report Type: Report from Study
  Country: US (occurrence: US)
  Receive Date: 20230607
  Receipt Date: 20250710
  Transmission Date: 20251020
  Serious: Yes (Hospitalization)
  Sender: JAZZ
  Company Number: US-JAZZ PHARMACEUTICALS-2023-US-012081

PATIENT
  Sex: Male

DRUGS (10)
  1. EPIDIOLEX [Suspect]
     Active Substance: CANNABIDIOL
     Indication: Product used for unknown indication
     Dosage: 14 MILLIGRAM, BID, G-TUBE
     Dates: start: 202303
  2. CLOBAZAM [Concomitant]
     Active Substance: CLOBAZAM
  3. KEPPRA [Concomitant]
     Active Substance: LEVETIRACETAM
  4. FYCOMPA [Concomitant]
     Active Substance: PERAMPANEL
  5. LACOSAMIDE [Concomitant]
     Active Substance: LACOSAMIDE
  6. ALBUTEROL SULFATE [Concomitant]
     Active Substance: ALBUTEROL SULFATE
  7. VITAMIN D3 [Concomitant]
     Active Substance: CHOLECALCIFEROL
  8. PHENOBARBITAL [Concomitant]
     Active Substance: PHENOBARBITAL
  9. LASIX [Concomitant]
     Active Substance: FUROSEMIDE
  10. CEFEPIME HYDROCHLORIDE [Concomitant]
     Active Substance: CEFEPIME HYDROCHLORIDE

REACTIONS (1)
  - Hospitalisation [Unknown]
